FAERS Safety Report 19013160 (Version 1)
Quarter: 2021Q1

REPORT INFORMATION
  Report Type: Spontaneous
  Country: GB (occurrence: GB)
  Receive Date: 20210316
  Receipt Date: 20210316
  Transmission Date: 20210420
  Serious: Yes (Hospitalization)
  Sender: FDA-Public Use
  Company Number: GB-TEVA-2021-GB-1888988

PATIENT
  Age: 24 Year
  Sex: Male

DRUGS (6)
  1. PROCYCLIDINE [Concomitant]
     Active Substance: PROCYCLIDINE
  2. AVEENO [Concomitant]
     Active Substance: DIMETHICONE\HOMOSALATE\OCTINOXATE\OCTISALATE\TITANIUM DIOXIDE
  3. DIAZEPAM. [Concomitant]
     Active Substance: DIAZEPAM
  4. DERMOL [Concomitant]
     Active Substance: BENZALKONIUM CHLORIDE\CHLORHEXIDINE HYDROCHLORIDE\ISOPROPYL MYRISTATE\PARAFFIN
  5. OLANZAPINE. [Suspect]
     Active Substance: OLANZAPINE
     Indication: ACUTE PSYCHOSIS
     Dosage: 15MG NOCTE
     Route: 048
     Dates: start: 202102, end: 20210223
  6. LORAZEPAM. [Concomitant]
     Active Substance: LORAZEPAM

REACTIONS (1)
  - Blood prolactin abnormal [Recovering/Resolving]

NARRATIVE: CASE EVENT DATE: 20210223
